FAERS Safety Report 15256374 (Version 2)
Quarter: 2018Q3

REPORT INFORMATION
  Report Type: Spontaneous
  Country: FR (occurrence: FR)
  Receive Date: 20180808
  Receipt Date: 20180910
  Transmission Date: 20181010
  Serious: Yes (Other)
  Sender: FDA-Public Use
  Company Number: FR-CONCORDIA PHARMACEUTICALS INC.-GSH201808-002915

PATIENT
  Age: 76 Year
  Sex: Male
  Weight: 93 kg

DRUGS (20)
  1. SIMVASTATINE ARROW [Concomitant]
     Active Substance: SIMVASTATIN
  2. PRIMPERAN [Concomitant]
     Active Substance: METOCLOPRAMIDE HYDROCHLORIDE
  3. URAPIDIL MYLAN [Concomitant]
     Active Substance: URAPIDIL
  4. ELUDRILPERIO [Concomitant]
     Active Substance: CHLORHEXIDINE GLUCONATE
  5. PHLOROGLUCINOL ARROW [Concomitant]
     Active Substance: PHLOROGLUCINOL
  6. ELIQUIS [Concomitant]
     Active Substance: APIXABAN
     Dates: end: 20180405
  7. AVODART [Concomitant]
     Active Substance: DUTASTERIDE
     Dates: end: 20180405
  8. AMLODIPINE BESILATE [Suspect]
     Active Substance: AMLODIPINE BESYLATE
     Indication: HYPERTENSION
     Route: 048
     Dates: start: 20180406
  9. PARACETAMOL [Concomitant]
     Active Substance: ACETAMINOPHEN
  10. ESIDREX [Suspect]
     Active Substance: HYDROCHLOROTHIAZIDE
     Indication: HYPERTENSION
     Dosage: 1 MONTH 1 DAY
     Route: 048
     Dates: start: 20180401, end: 20180501
  11. FUNGIZONE [Suspect]
     Active Substance: AMPHOTERICIN B
     Indication: PRODUCT USED FOR UNKNOWN INDICATION
     Dosage: 1 MONTH 1 DAY
     Route: 048
     Dates: start: 20180410, end: 20180510
  12. BENAZEPRIL [Concomitant]
     Active Substance: BENAZEPRIL HYDROCHLORIDE
  13. ALFUZOSIN EXTENDED?RELEASE TABLET 10 MG [Suspect]
     Active Substance: ALFUZOSIN
     Indication: DYSURIA
     Route: 048
     Dates: start: 20180405
  14. PANTOPRAZOLE SODIUM. [Suspect]
     Active Substance: PANTOPRAZOLE SODIUM
     Dosage: 1 MONTH 10 DAYS
     Route: 048
     Dates: start: 20180406, end: 20180515
  15. TAMSULOSINE [Concomitant]
     Active Substance: TAMSULOSIN HYDROCHLORIDE
     Dates: end: 20180405
  16. ESOMEPRAZOLE [Concomitant]
     Active Substance: ESOMEPRAZOLE
     Dates: end: 20180405
  17. ALLOPURINOL. [Concomitant]
     Active Substance: ALLOPURINOL
     Dates: end: 20180405
  18. AMOXICILLINE/ACIDE CLAVULANIQ. SANDOZ [Concomitant]
     Active Substance: AMOXICILLIN\CLAVULANIC ACID
     Dates: start: 20180310, end: 20180317
  19. SMECTA [Concomitant]
     Active Substance: MONTMORILLONITE
  20. LOVENOX [Suspect]
     Active Substance: ENOXAPARIN SODIUM
     Indication: THROMBOSIS PROPHYLAXIS
     Route: 058
     Dates: start: 20180406

REACTIONS (1)
  - Hypokalaemia [Recovered/Resolved]

NARRATIVE: CASE EVENT DATE: 20180409
